FAERS Safety Report 6921285-3 (Version None)
Quarter: 2010Q3

REPORT INFORMATION
  Report Type: 
  Country: None (occurrence: None)
  Receive Date: 20100812
  Receipt Date: 20100803
  Transmission Date: 20110219
  Serious: No
  Sender: FDA-Public Use
  Company Number: B0639057A

PATIENT
  Sex: Female
  Weight: 40 kg

DRUGS (11)
  1. TYKERB [Suspect]
     Indication: BREAST CANCER
     Dosage: 1250MG PER DAY
     Route: 048
     Dates: start: 20100222, end: 20100228
  2. XELODA [Suspect]
     Indication: BREAST CANCER
     Dosage: 1000MG PER DAY
     Route: 048
     Dates: start: 20100222, end: 20100228
  3. SENNOSIDE [Suspect]
     Indication: PRODUCT USED FOR UNKNOWN INDICATION
     Route: 048
     Dates: start: 20050715
  4. FEMARA [Concomitant]
     Indication: BREAST CANCER
     Dosage: 2.5MG PER DAY
     Route: 048
     Dates: start: 20071103
  5. ASPIRIN [Concomitant]
     Indication: PRODUCT USED FOR UNKNOWN INDICATION
     Route: 048
  6. TAKEPRON [Concomitant]
     Indication: PRODUCT USED FOR UNKNOWN INDICATION
     Route: 048
  7. NITRODERM [Concomitant]
     Indication: PRODUCT USED FOR UNKNOWN INDICATION
     Route: 062
     Dates: start: 20050802
  8. LENDORMIN [Concomitant]
     Route: 048
     Dates: start: 20050815
  9. UNKNOWN [Concomitant]
     Route: 048
     Dates: start: 20050715
  10. ZOMETA [Concomitant]
     Route: 042
     Dates: start: 20070723
  11. ASPIRIN [Concomitant]
     Route: 048

REACTIONS (4)
  - DECREASED APPETITE [None]
  - DIARRHOEA [None]
  - MALAISE [None]
  - VOMITING [None]
